FAERS Safety Report 12925410 (Version 2)
Quarter: 2017Q1

REPORT INFORMATION
  Report Type: Spontaneous
  Country: US (occurrence: US)
  Receive Date: 20161109
  Receipt Date: 20170207
  Transmission Date: 20170428
  Serious: Yes (Other)
  Sender: FDA-Public Use
  Company Number: US-SA-2016SA200803

PATIENT
  Age: 74 Year
  Sex: Female
  Weight: 93.14 kg

DRUGS (3)
  1. LANTUS [Suspect]
     Active Substance: INSULIN GLARGINE
     Indication: INSULIN-REQUIRING TYPE 2 DIABETES MELLITUS
     Dosage: 40-50 UNITS
     Route: 058
  2. FLEXPEN [Concomitant]
     Active Substance: UNSPECIFIED INGREDIENT
     Indication: INSULIN-REQUIRING TYPE 2 DIABETES MELLITUS
  3. NOVORAPID [Concomitant]
     Active Substance: INSULIN ASPART
     Indication: INSULIN-REQUIRING TYPE 2 DIABETES MELLITUS
     Route: 058

REACTIONS (2)
  - Cataract [Unknown]
  - Uveitis [Unknown]
